FAERS Safety Report 6665278-2 (Version None)
Quarter: 2010Q2

REPORT INFORMATION
  Report Type: 
  Country: None (occurrence: None)
  Receive Date: 20100402
  Receipt Date: 20100324
  Transmission Date: 20101027
  Serious: Yes (Other)
  Sender: FDA-Public Use
  Company Number: SE-ABBOTT-10P-150-0631046-00

PATIENT
  Sex: Female

DRUGS (3)
  1. HUMIRA [Suspect]
     Indication: CROHN'S DISEASE
     Dosage: ONLY 3 DOSES WERE GIVEN
     Route: 058
     Dates: start: 20081205, end: 20090114
  2. COLAZID [Concomitant]
     Indication: DRUG USE FOR UNKNOWN INDICATION
  3. TRIONETTA [Concomitant]
     Indication: CONTRACEPTION

REACTIONS (3)
  - ANAPHYLACTIC REACTION [None]
  - PRURITUS [None]
  - RASH MACULO-PAPULAR [None]
